FAERS Safety Report 4521267-5 (Version None)
Quarter: 2004Q4

REPORT INFORMATION
  Report Type: 
  Country: None (occurrence: None)
  Receive Date: 20041208
  Receipt Date: 20041129
  Transmission Date: 20050328
  Serious: Yes (Other)
  Sender: FDA-Public Use
  Company Number: US-GLAXOSMITHKLINE-A0535401A

PATIENT
  Sex: Female

DRUGS (2)
  1. LAMICTAL [Suspect]
     Indication: BIPOLAR DISORDER
     Route: 048
  2. SEROQUEL [Concomitant]

REACTIONS (1)
  - CONVULSION [None]
